FAERS Safety Report 15105854 (Version 1)
Quarter: 2018Q3

REPORT INFORMATION
  Report Type: Spontaneous
  Country: FR (occurrence: FR)
  Receive Date: 20180704
  Receipt Date: 20180704
  Transmission Date: 20181010
  Serious: Yes (Hospitalization)
  Sender: FDA-Public Use
  Company Number: FR-ACCORD-069086

PATIENT
  Age: 42 Year
  Sex: Female
  Weight: 67 kg

DRUGS (3)
  1. CISPLATIN. [Suspect]
     Active Substance: CISPLATIN
     Indication: UTERINE CANCER
     Route: 042
     Dates: start: 20170306
  2. ONDANSETRON [Suspect]
     Active Substance: ONDANSETRON
     Indication: UTERINE CANCER
     Route: 042
     Dates: start: 20170306
  3. METHYLPREDNISOLONE. [Suspect]
     Active Substance: METHYLPREDNISOLONE
     Indication: UTERINE CANCER
     Route: 042
     Dates: start: 20170306

REACTIONS (7)
  - Vertigo [Recovered/Resolved]
  - Leukopenia [Recovered/Resolved]
  - Tinnitus [Recovered/Resolved]
  - Diarrhoea [Recovered/Resolved]
  - Abdominal pain [Recovered/Resolved]
  - Off label use [Unknown]
  - Alopecia [Not Recovered/Not Resolved]

NARRATIVE: CASE EVENT DATE: 20170320
